FAERS Safety Report 10398528 (Version 2)
Quarter: 2014Q3

REPORT INFORMATION
  Report Type: Report from Study
  Country: US (occurrence: US)
  Receive Date: 20140821
  Receipt Date: 20140923
  Transmission Date: 20150326
  Serious: Yes (Other)
  Sender: FDA-Public Use
  Company Number: PHEH2014US016257

PATIENT
  Age: 50 Year
  Sex: Female
  Weight: 63.49 kg

DRUGS (4)
  1. GILENYA [Suspect]
     Active Substance: FINGOLIMOD HYDROCHLORIDE
     Indication: MULTIPLE SCLEROSIS
     Dosage: 0.5 MG, QD
     Route: 048
     Dates: start: 201402
  2. VITAMIN D3 [Concomitant]
     Active Substance: CHOLECALCIFEROL
  3. BACLOFEN. [Concomitant]
     Active Substance: BACLOFEN
  4. MULTI VITAMIN [Concomitant]
     Active Substance: VITAMINS

REACTIONS (11)
  - Dysuria [Unknown]
  - Nephrolithiasis [Recovering/Resolving]
  - Blood urine [Unknown]
  - Bladder irritation [Unknown]
  - Infection [Unknown]
  - Haematuria [Recovering/Resolving]
  - Pyrexia [Unknown]
  - Lethargy [Unknown]
  - Flank pain [Unknown]
  - Oropharyngeal pain [Recovering/Resolving]
  - Micturition urgency [Unknown]

NARRATIVE: CASE EVENT DATE: 20140723
